FAERS Safety Report 9366450 (Version 2)
Quarter: 2013Q3

REPORT INFORMATION
  Report Type: Spontaneous
  Country: FR (occurrence: FR)
  Receive Date: 20130625
  Receipt Date: 20130912
  Transmission Date: 20140515
  Serious: Yes (Death, Hospitalization)
  Sender: FDA-Public Use
  Company Number: FR-TEVA-415020ISR

PATIENT
  Age: 86 Year
  Sex: Male

DRUGS (1)
  1. FUROSEMIDE TEVA? 40 MG [Suspect]
     Dosage: SCORED TABLET
     Route: 048

REACTIONS (2)
  - Death [Fatal]
  - Cardiac failure [Unknown]
